FAERS Safety Report 11665321 (Version 2)
Quarter: 2015Q4

REPORT INFORMATION
  Report Type: Spontaneous
  Country: US (occurrence: US)
  Receive Date: 20151027
  Receipt Date: 20151029
  Transmission Date: 20160304
  Serious: Yes (Death, Hospitalization)
  Sender: FDA-Public Use
  Company Number: US-009507513-1510USA010046

PATIENT
  Age: 46 Year
  Sex: Female

DRUGS (1)
  1. TEMODAR [Suspect]
     Active Substance: TEMOZOLOMIDE
     Dosage: UNK
     Route: 048
     Dates: start: 20150806

REACTIONS (2)
  - Adverse event [Unknown]
  - Death [Fatal]

NARRATIVE: CASE EVENT DATE: 20151002
